FAERS Safety Report 25379057 (Version 1)
Quarter: 2025Q2

REPORT INFORMATION
  Report Type: Spontaneous
  Country: US (occurrence: None)
  Receive Date: 20250529
  Receipt Date: 20250529
  Transmission Date: 20250716
  Serious: Yes (Death)
  Sender: FDA-CTU
  Company Number: None

PATIENT
  Sex: Male
  Weight: 23 kg

DRUGS (27)
  1. CLOBAZAM [Suspect]
     Active Substance: CLOBAZAM
     Indication: Lennox-Gastaut syndrome
     Dosage: OTHER QUANTITY : 2 TABLET(S);?FREQUENCY : TWICE A DAY;?OTHER ROUTE : VIA G-TUBE;?
     Route: 050
     Dates: start: 20240301
  2. CLOBAZAM [Concomitant]
     Active Substance: CLOBAZAM
  3. LORAZEPAM [Concomitant]
     Active Substance: LORAZEPAM
  4. trasosone [Concomitant]
  5. CLONIDINE [Concomitant]
     Active Substance: CLONIDINE
  6. BACLOFEN [Concomitant]
     Active Substance: BACLOFEN
  7. RISPERIDONE [Concomitant]
     Active Substance: RISPERIDONE
  8. GLYCOPYRROLATE [Concomitant]
     Active Substance: GLYCOPYRROLATE
  9. ATROPINE [Concomitant]
     Active Substance: ATROPINE
  10. CETIRIZINE [Concomitant]
     Active Substance: CETIRIZINE HYDROCHLORIDE
  11. albuterol prn [Concomitant]
  12. SYMBICORT [Concomitant]
     Active Substance: BUDESONIDE\FORMOTEROL FUMARATE DIHYDRATE
  13. FLONASE [Concomitant]
     Active Substance: FLUTICASONE PROPIONATE
  14. salin nebs [Concomitant]
  15. SCOPOLAMINE TRANSDERMAL SYSTEM [Concomitant]
     Active Substance: SCOPOLAMINE
  16. MIRALAX [Concomitant]
     Active Substance: POLYETHYLENE GLYCOL 3350
  17. Feeding tub [Concomitant]
  18. oxygn [Concomitant]
  19. airway clearance vest [Concomitant]
  20. cough assist machine [Concomitant]
  21. pulse oximeter [Concomitant]
  22. high-flow oxygen machine [Concomitant]
  23. suction [Concomitant]
  24. MORPHINE [Concomitant]
     Active Substance: MORPHINE
  25. TYLENOL [Concomitant]
     Active Substance: ACETAMINOPHEN
  26. IBUPROFEN [Concomitant]
     Active Substance: IBUPROFEN
  27. magnesium powder [Concomitant]

REACTIONS (4)
  - Secretion discharge [None]
  - Hypotonia [None]
  - General physical health deterioration [None]
  - Product prescribing issue [None]
